FAERS Safety Report 18668403 (Version 1)
Quarter: 2020Q4

REPORT INFORMATION
  Report Type: Spontaneous
  Country: US (occurrence: US)
  Receive Date: 20201223
  Receipt Date: 20201223
  Transmission Date: 20210114
  Serious: Yes (Hospitalization)
  Sender: FDA-Public Use
  Company Number: None

PATIENT
  Age: 81 Year
  Sex: Female

DRUGS (1)
  1. ANAGRELIDE HCL 0.5MG TEVA [Suspect]
     Active Substance: ANAGRELIDE HYDROCHLORIDE
     Indication: MYOCARDIAL INFARCTION
     Route: 048
     Dates: start: 20200725

REACTIONS (1)
  - Myocardial infarction [None]

NARRATIVE: CASE EVENT DATE: 20201124
